FAERS Safety Report 11144669 (Version 1)
Quarter: 2015Q2

REPORT INFORMATION
  Report Type: Spontaneous
  Country: US (occurrence: None)
  Receive Date: 20150526
  Receipt Date: 20150526
  Transmission Date: 20150821
  Serious: No
  Sender: FDA-Public Use
  Company Number: 2015-431-7749

PATIENT
  Age: 60 Year
  Sex: Male
  Weight: 79.38 kg

DRUGS (7)
  1. FISH OIL [Concomitant]
     Active Substance: FISH OIL
  2. UNSPECIFIED DYSLIPIDEMIC (STATIN) [Concomitant]
  3. ZICAM COLD REMEDY [Suspect]
     Active Substance: ZINC ACETATE\ZINC GLUCONATE
     Indication: NASOPHARYNGITIS
     Dosage: SPRAY ORALLY X NOS
     Route: 048
     Dates: start: 201501
  4. COENZYME Q-10 [Concomitant]
  5. GINKGO BILOBA [Concomitant]
     Active Substance: GINKGO
  6. ZICAM COLD REMEDY [Suspect]
     Active Substance: ZINC ACETATE\ZINC GLUCONATE
     Indication: INFLUENZA
     Dosage: SPRAY ORALLY X NOS
     Route: 048
     Dates: start: 201501
  7. ASPIRIN. [Concomitant]
     Active Substance: ASPIRIN

REACTIONS (2)
  - Ageusia [None]
  - Dysgeusia [None]

NARRATIVE: CASE EVENT DATE: 201501
